FAERS Safety Report 8814886 (Version 1)
Quarter: 2012Q4

REPORT INFORMATION
  Report Type: 
  Country: US (occurrence: US)
  Receive Date: 20120928
  Receipt Date: 20120928
  Transmission Date: 20130627
  Serious: No
  Sender: FDA-Public Use
  Company Number: US-MUTUAL PHARMACEUTICAL COMPANY, INC.-QLQN20110021

PATIENT
  Sex: Male
  Weight: 131.66 kg

DRUGS (5)
  1. QUALAQUIN [Suspect]
     Indication: CRAMPS IN LEGS
     Route: 048
  2. QUININE SULFATE [Suspect]
     Indication: CRAMPS IN LEGS
     Route: 048
     Dates: start: 2005
  3. ASPIRIN 81 MG [Concomitant]
     Indication: DRUG USE FOR UNKNOWN INDICATION
     Route: 048
  4. ULTRAM 300 MG [Concomitant]
     Indication: CHRONIC BACK PAIN
     Route: 048
  5. TRAMADOL 50 MG [Concomitant]
     Indication: CHRONIC BACK PAIN
     Route: 048

REACTIONS (1)
  - Off label use [None]
